FAERS Safety Report 4960451-3 (Version None)
Quarter: 2006Q2

REPORT INFORMATION
  Report Type: 
  Country: None (occurrence: None)
  Receive Date: 20060403
  Receipt Date: 20060330
  Transmission Date: 20061013
  Serious: Yes (Other)
  Sender: FDA-Public Use
  Company Number: US-GLAXOSMITHKLINE-A0599769A

PATIENT
  Age: 71 Year
  Sex: Female

DRUGS (3)
  1. REQUIP [Suspect]
     Indication: RESTLESS LEGS SYNDROME
     Dosage: 1MG PER DAY
     Route: 048
     Dates: start: 20060101, end: 20060323
  2. IMITREX [Concomitant]
  3. LEXAPRO [Concomitant]

REACTIONS (4)
  - HEPATIC ENZYME INCREASED [None]
  - MYALGIA [None]
  - RASH GENERALISED [None]
  - STOMATITIS [None]
